FAERS Safety Report 11458354 (Version 1)
Quarter: 2015Q3

REPORT INFORMATION
  Report Type: Report from Study
  Country: US (occurrence: US)
  Receive Date: 20150904
  Receipt Date: 20150904
  Transmission Date: 20151125
  Serious: No
  Sender: FDA-Public Use
  Company Number: US-AMGEN-USASP2015088515

PATIENT
  Age: 54 Year
  Sex: Female

DRUGS (1)
  1. ENBREL [Suspect]
     Active Substance: ETANERCEPT
     Indication: RHEUMATOID ARTHRITIS
     Dosage: UNK
     Route: 065

REACTIONS (15)
  - Oral pain [Unknown]
  - Fatigue [Unknown]
  - Mood altered [Not Recovered/Not Resolved]
  - Pollakiuria [Unknown]
  - Hypersomnia [Unknown]
  - Rash [Unknown]
  - Abdominal discomfort [Unknown]
  - Vaginal discharge [Unknown]
  - Hypoaesthesia [Unknown]
  - Chronic obstructive pulmonary disease [Not Recovered/Not Resolved]
  - Mobility decreased [Unknown]
  - Irritable bowel syndrome [Not Recovered/Not Resolved]
  - Adverse reaction [Unknown]
  - Depression [Not Recovered/Not Resolved]
  - Oropharyngeal pain [Unknown]

NARRATIVE: CASE EVENT DATE: 201508
